FAERS Safety Report 21027378 (Version 2)
Quarter: 2022Q3

REPORT INFORMATION
  Report Type: Spontaneous
  Country: AT (occurrence: AT)
  Receive Date: 20220630
  Receipt Date: 20220704
  Transmission Date: 20221027
  Serious: Yes (Other)
  Sender: FDA-Public Use
  Company Number: AT-ABBVIE-22K-009-4450083-00

PATIENT
  Age: 59 Year
  Sex: Female

DRUGS (6)
  1. VENETOCLAX [Suspect]
     Active Substance: VENETOCLAX
     Indication: Acute myeloid leukaemia
     Route: 048
     Dates: start: 202106, end: 202108
  2. VENETOCLAX [Suspect]
     Active Substance: VENETOCLAX
     Route: 048
     Dates: start: 202108, end: 202110
  3. VENETOCLAX [Suspect]
     Active Substance: VENETOCLAX
     Route: 048
     Dates: start: 202203
  4. AZACITIDINE [Concomitant]
     Active Substance: AZACITIDINE
     Indication: Product used for unknown indication
     Dates: start: 202106, end: 202108
  5. AZACITIDINE [Concomitant]
     Active Substance: AZACITIDINE
     Dates: start: 202108, end: 202110
  6. AZACITIDINE [Concomitant]
     Active Substance: AZACITIDINE
     Dosage: MONOTHERAPY
     Dates: start: 202110

REACTIONS (9)
  - Bone marrow oedema [Unknown]
  - Neuroendocrine tumour [Recovering/Resolving]
  - Pancytopenia [Unknown]
  - Neutropenic sepsis [Unknown]
  - Blast cell count increased [Unknown]
  - Dysplasia [Unknown]
  - Blood lactate dehydrogenase increased [Unknown]
  - Thrombocytopenia [Unknown]
  - Anaemia [Unknown]

NARRATIVE: CASE EVENT DATE: 20211001
